FAERS Safety Report 5744381-5 (Version None)
Quarter: 2008Q2

REPORT INFORMATION
  Report Type: 
  Country: None (occurrence: None)
  Receive Date: 20080520
  Receipt Date: 20080513
  Transmission Date: 20081010
  Serious: No
  Sender: FDA-Public Use
  Company Number: US-ELI_LILLY_AND_COMPANY-US200707003236

PATIENT
  Sex: Male

DRUGS (9)
  1. BYETTA [Suspect]
     Indication: TYPE 2 DIABETES MELLITUS
     Dosage: 5 UG, 2/D
     Route: 058
     Dates: start: 20070412, end: 20070430
  2. BYETTA [Suspect]
     Dosage: 10 UG, 2/D
     Route: 058
     Dates: start: 20070501
  3. BYETTA [Suspect]
     Dosage: 10 UG, 2/D
     Route: 058
     Dates: start: 20070501
  4. GLUCOTROL [Concomitant]
     Indication: TYPE 2 DIABETES MELLITUS
     Dosage: 5 MG, 3/D
  5. AVANDIA [Concomitant]
     Dosage: UNK, UNKNOWN
  6. ACTOS [Concomitant]
     Indication: TYPE 2 DIABETES MELLITUS
  7. METFORMIN HCL [Concomitant]
     Dosage: UNK, UNKNOWN
     Dates: end: 20070401
  8. IBUPROFEN [Concomitant]
     Dosage: UNK, UNKNOWN
  9. ACE INHIBITOR NOS [Concomitant]
     Dosage: UNK, UNKNOWN

REACTIONS (11)
  - ACCIDENTAL OVERDOSE [None]
  - AMNESIA [None]
  - ARTHRALGIA [None]
  - BLOOD GLUCOSE INCREASED [None]
  - FATIGUE [None]
  - INCORRECT DOSE ADMINISTERED [None]
  - INJECTION SITE IRRITATION [None]
  - INJECTION SITE PAIN [None]
  - JOINT STIFFNESS [None]
  - PAIN [None]
  - PYREXIA [None]
